FAERS Safety Report 7991289-0 (Version None)
Quarter: 2011Q4

REPORT INFORMATION
  Report Type: 
  Country: None (occurrence: None)
  Receive Date: 20111219
  Receipt Date: 20111213
  Transmission Date: 20120403
  Serious: No
  Sender: FDA-Public Use
  Company Number: US-B.I. PHARMACEUTICALS,INC./RIDGEFIELD-2011-BP-28047BP

PATIENT
  Sex: Male

DRUGS (11)
  1. VITAMIN C [Concomitant]
     Indication: SUPPLEMENTATION THERAPY
     Route: 048
  2. SIMVASTATIN [Concomitant]
     Indication: BLOOD CHOLESTEROL INCREASED
  3. LUNESTA [Concomitant]
     Indication: INSOMNIA
     Route: 048
  4. CALCIUM [Concomitant]
     Indication: SUPPLEMENTATION THERAPY
     Route: 048
  5. LOSARTAN POTASSIUM [Concomitant]
     Indication: HYPERTENSION
     Route: 048
  6. LOVAZA [Concomitant]
     Indication: SUPPLEMENTATION THERAPY
     Route: 048
  7. COQ10 [Concomitant]
     Indication: SUPPLEMENTATION THERAPY
     Route: 048
  8. PRILOSEC [Concomitant]
     Indication: GASTROOESOPHAGEAL REFLUX DISEASE
     Route: 048
  9. ASPIRIN [Concomitant]
     Indication: PROPHYLAXIS
     Dosage: 81 MG
     Route: 048
  10. SPIRIVA [Suspect]
     Indication: CHRONIC OBSTRUCTIVE PULMONARY DISEASE
     Dosage: 18 MCG
     Route: 055
     Dates: start: 20111001
  11. TRIAMTERENE AND HYDROCHLOROTHIAZIDE [Concomitant]
     Indication: HYPERTENSION

REACTIONS (2)
  - SPUTUM INCREASED [None]
  - CHEST DISCOMFORT [None]
